FAERS Safety Report 8001333-2 (Version None)
Quarter: 2011Q4

REPORT INFORMATION
  Report Type: 
  Country: None (occurrence: None)
  Receive Date: 20111222
  Receipt Date: 20111214
  Transmission Date: 20120403
  Serious: Yes (Other)
  Sender: FDA-Public Use
  Company Number: US-BAYER-2011-050095

PATIENT
  Age: 21 Year
  Sex: Female
  Weight: 60.771 kg

DRUGS (7)
  1. YAZ [Suspect]
     Indication: CONTRACEPTION
  2. IBUPROFEN [Concomitant]
     Dosage: UNK UNK, PRN
  3. ALBUTEROL [Concomitant]
     Indication: ASTHMA
  4. YAZ [Suspect]
     Indication: ACNE
     Dosage: UNK
     Dates: start: 20090401, end: 20100201
  5. DICIOFENAC SODIUM EC [Concomitant]
  6. METFORMIN HYDROCHLORIDE [Concomitant]
  7. ACETAMINOPHEN [Concomitant]

REACTIONS (2)
  - PULMONARY EMBOLISM [None]
  - PAIN [None]
